FAERS Safety Report 5597317-4 (Version None)
Quarter: 2008Q1

REPORT INFORMATION
  Report Type: 
  Country: None (occurrence: None)
  Receive Date: 20080121
  Receipt Date: 20080111
  Transmission Date: 20080703
  Serious: Yes (Hospitalization)
  Sender: FDA-Public Use
  Company Number: US-JNJFOC-20080103137

PATIENT
  Sex: Male
  Weight: 120.2 kg

DRUGS (8)
  1. DURAGESIC-100 [Suspect]
     Dosage: 2X 100UG/HR PATCHES
     Route: 062
  2. DURAGESIC-100 [Suspect]
     Indication: PAIN
     Route: 062
  3. FENTANYL TRANSDERMAL SYSTEM [Suspect]
     Indication: PAIN
     Route: 062
  4. PERCOCET [Concomitant]
     Indication: BREAKTHROUGH PAIN
     Dosage: 10/325MG
     Route: 048
  5. PREVACID [Concomitant]
     Indication: GASTROOESOPHAGEAL REFLUX DISEASE
     Route: 065
  6. ZYRTEC [Concomitant]
     Indication: MULTIPLE ALLERGIES
     Route: 065
  7. SINGULAIR [Concomitant]
     Indication: ASTHMA
     Route: 065
  8. PHENTERMINE [Concomitant]
     Route: 048

REACTIONS (10)
  - BODY TEMPERATURE INCREASED [None]
  - BREAKTHROUGH PAIN [None]
  - CONFUSIONAL STATE [None]
  - INAPPROPRIATE SCHEDULE OF DRUG ADMINISTRATION [None]
  - INTERVERTEBRAL DISC COMPRESSION [None]
  - INTERVERTEBRAL DISC DISORDER [None]
  - MENTAL STATUS CHANGES [None]
  - PHARMACEUTICAL PRODUCT COMPLAINT [None]
  - WITHDRAWAL SYNDROME [None]
  - WRONG TECHNIQUE IN DRUG USAGE PROCESS [None]
